FAERS Safety Report 4446016-0 (Version None)
Quarter: 2004Q3

REPORT INFORMATION
  Report Type: 
  Country: None (occurrence: None)
  Receive Date: 20040903
  Receipt Date: 20040823
  Transmission Date: 20050211
  Serious: Yes (Hospitalization, Other)
  Sender: FDA-Public Use
  Company Number: 2004058462

PATIENT
  Sex: Male

DRUGS (8)
  1. LIPITOR [Suspect]
     Indication: BLOOD CHOLESTEROL
     Dosage: 10 MG (10 MG, 1 IN 1 D), ORAL
     Route: 048
     Dates: start: 20030201, end: 20040201
  2. DILANTIN [Suspect]
     Indication: ILL-DEFINED DISORDER
  3. LISINOPRIL [Concomitant]
  4. ACETYLSALICYLIC ACID [Concomitant]
  5. METOPROLOL [Concomitant]
  6. SIMVASTATIN [Concomitant]
  7. CLOPIDGREL SULFATE [Concomitant]
  8. PHENOBARBITAL TAB [Concomitant]

REACTIONS (7)
  - ANEURYSM [None]
  - ANGINA PECTORIS [None]
  - CARDIAC FAILURE CONGESTIVE [None]
  - CARDIOMYOPATHY [None]
  - HEPATIC ENZYME INCREASED [None]
  - LUNG NEOPLASM [None]
  - MYOCARDIAL INFARCTION [None]
